FAERS Safety Report 23393284 (Version 1)
Quarter: 2024Q1

REPORT INFORMATION
  Report Type: Spontaneous
  Country: US (occurrence: None)
  Receive Date: 20240111
  Receipt Date: 20240111
  Transmission Date: 20240409
  Serious: Yes (Hospitalization)
  Sender: FDA-Public Use
  Company Number: None

PATIENT
  Sex: Female

DRUGS (1)
  1. XALKORI [Suspect]
     Active Substance: CRIZOTINIB
     Indication: Bronchial carcinoma
     Dosage: 250MG TWICE DAILY BY MOUTH
     Route: 048
     Dates: start: 201703

REACTIONS (4)
  - Seizure [None]
  - Electrolyte imbalance [None]
  - Blood potassium decreased [None]
  - Blood magnesium decreased [None]
